FAERS Safety Report 20428259 (Version 1)
Quarter: 2022Q1

REPORT INFORMATION
  Report Type: Other
  Country: US (occurrence: None)
  Receive Date: 20220204
  Receipt Date: 20220204
  Transmission Date: 20220423
  Serious: Yes (Other)
  Sender: FDA-Public Use
  Company Number: US-ROCHE-3011137

PATIENT
  Age: 75 Year
  Sex: Male

DRUGS (8)
  1. TOCILIZUMAB [Suspect]
     Active Substance: TOCILIZUMAB
     Indication: COVID-19 pneumonia
     Dosage: 1 DOSE ON DAY 2
     Route: 042
  2. REMDESIVIR [Suspect]
     Active Substance: REMDESIVIR
     Indication: COVID-19 pneumonia
     Dosage: FOR DAY 1
     Route: 065
  3. REMDESIVIR [Suspect]
     Active Substance: REMDESIVIR
     Dosage: FOR 4 DAYS
     Route: 065
  4. DEXAMETHASONE [Concomitant]
     Active Substance: DEXAMETHASONE
     Route: 042
  5. METHYLPREDNISOLONE [Concomitant]
     Active Substance: METHYLPREDNISOLONE
  6. METHYLPREDNISOLONE [Concomitant]
     Active Substance: METHYLPREDNISOLONE
  7. ETESEVIMAB [Concomitant]
     Active Substance: ETESEVIMAB
  8. BAMLANIVIMAB [Concomitant]
     Active Substance: BAMLANIVIMAB

REACTIONS (4)
  - Bradycardia [Unknown]
  - Hypersensitivity [Unknown]
  - Liver disorder [Unknown]
  - Off label use [Unknown]
